FAERS Safety Report 4865685-4 (Version None)
Quarter: 2005Q4

REPORT INFORMATION
  Report Type: 
  Country: None (occurrence: None)
  Receive Date: 20051220
  Receipt Date: 20051206
  Transmission Date: 20060501
  Serious: Yes (Life-Threatening, Hospitalization)
  Sender: FDA-Public Use
  Company Number: COT_0264_2005

PATIENT
  Age: 56 Year
  Sex: Female
  Weight: 96.6162 kg

DRUGS (19)
  1. VENTAVIS [Suspect]
     Indication: PULMONARY HYPERTENSION
     Dosage: 2.5 MCG ONCE IH
     Route: 055
     Dates: start: 20050517, end: 20050517
  2. VENTAVIS [Suspect]
     Indication: PULMONARY HYPERTENSION
     Dosage: 5 MCG 6TO9X/DAY IH
     Route: 055
     Dates: start: 20050517
  3. VENTAVIS [Suspect]
     Indication: PULMONARY HYPERTENSION
     Dosage: 5 MCG 6TO9X/DAY IH
     Route: 055
     Dates: start: 20050517
  4. SILDENAFIL [Concomitant]
  5. TRACLEER [Concomitant]
  6. VITAPLEX [Concomitant]
  7. REGLAN [Concomitant]
  8. FOLIC ACID [Concomitant]
  9. ZAROXOLYN [Concomitant]
  10. VICODIN [Concomitant]
  11. ASACOL [Concomitant]
  12. BENTYL [Concomitant]
  13. ELAVIL [Concomitant]
  14. HUMULIN N [Concomitant]
  15. NOVOLOG [Concomitant]
  16. OXYGEN [Concomitant]
  17. COMPAZINE [Concomitant]
  18. FUROSEMIDE [Concomitant]
  19. LANTUS [Concomitant]

REACTIONS (4)
  - DIZZINESS [None]
  - GASTROINTESTINAL HAEMORRHAGE [None]
  - NAUSEA [None]
  - OPERATIVE HAEMORRHAGE [None]
